FAERS Safety Report 4992429-8 (Version None)
Quarter: 2006Q2

REPORT INFORMATION
  Report Type: 
  Country: None (occurrence: None)
  Receive Date: 20060502
  Receipt Date: 20060421
  Transmission Date: 20061013
  Serious: Yes (Death, Other)
  Sender: FDA-Public Use
  Company Number: 2006055665

PATIENT
  Age: 20 Year
  Sex: Male
  Weight: 73.4827 kg

DRUGS (1)
  1. ZOLOFT [Suspect]
     Indication: ILL-DEFINED DISORDER
     Dosage: 50 MG (50 MG, 1 IN 1 D),

REACTIONS (17)
  - CHEST INJURY [None]
  - COMPLETED SUICIDE [None]
  - DEPRESSION [None]
  - EXCORIATION [None]
  - FALL [None]
  - FEMUR FRACTURE [None]
  - HAEMOTHORAX [None]
  - HEART RATE INCREASED [None]
  - HUMERUS FRACTURE [None]
  - LACERATION [None]
  - LUNG INJURY [None]
  - OPEN WOUND [None]
  - RETROPERITONEAL HAEMORRHAGE [None]
  - SKIN LACERATION [None]
  - SKULL FRACTURED BASE [None]
  - SPLENIC RUPTURE [None]
  - SUICIDAL IDEATION [None]
